FAERS Safety Report 16285303 (Version 1)
Quarter: 2019Q2

REPORT INFORMATION
  Report Type: Spontaneous
  Country: US (occurrence: US)
  Receive Date: 20190506
  Receipt Date: 20190506
  Transmission Date: 20190711
  Serious: Yes (Disabling)
  Sender: FDA-Public Use
  Company Number: None

PATIENT
  Age: 50 Year
  Sex: Male
  Weight: 92.7 kg

DRUGS (15)
  1. AMLODIPINE BESYLATE. [Concomitant]
     Active Substance: AMLODIPINE BESYLATE
  2. LEVOTHYROXINE. [Concomitant]
     Active Substance: LEVOTHYROXINE
  3. NITROGLYCERIN. [Concomitant]
     Active Substance: NITROGLYCERIN
  4. ZICAM (HOMEOPATHICS) [Concomitant]
     Active Substance: HOMEOPATHICS
  5. RANEXA [Suspect]
     Active Substance: RANOLAZINE
     Indication: ANGINA PECTORIS
     Dosage: ?          QUANTITY:1 TABLET(S);?
     Route: 048
     Dates: start: 20190329, end: 20190407
  6. MIRTAZAPINE. [Concomitant]
     Active Substance: MIRTAZAPINE
  7. SERTRALINE HCL 100 MG [Concomitant]
     Active Substance: SERTRALINE HYDROCHLORIDE
  8. SERTRALINE [Concomitant]
     Active Substance: SERTRALINE HYDROCHLORIDE
  9. ALPRAZOLAM ER [Concomitant]
     Active Substance: ALPRAZOLAM
  10. ZADITOR [Concomitant]
     Active Substance: KETOTIFEN FUMARATE
  11. ASPIRIN 81 MG [Concomitant]
     Active Substance: ASPIRIN
  12. ISOSORBIDE MONONIT ER [Concomitant]
  13. ROSUVASTATIN CALCIUM. [Concomitant]
     Active Substance: ROSUVASTATIN CALCIUM
  14. TESTOSTERONE 1.62% [Concomitant]
  15. LISINOPRIL. [Concomitant]
     Active Substance: LISINOPRIL

REACTIONS (5)
  - Tremor [None]
  - Insomnia [None]
  - Head titubation [None]
  - Gait inability [None]
  - Balance disorder [None]

NARRATIVE: CASE EVENT DATE: 20190407
